FAERS Safety Report 12393533 (Version 5)
Quarter: 2016Q3

REPORT INFORMATION
  Report Type: Spontaneous
  Country: JP (occurrence: JP)
  Receive Date: 20160523
  Receipt Date: 20160823
  Transmission Date: 20161109
  Serious: Yes (Hospitalization, Other)
  Sender: FDA-Public Use
  Company Number: JP-OTSUKA-2016_008412

PATIENT
  Age: 73 Year
  Sex: Male

DRUGS (3)
  1. SPIRONOLACTONE. [Suspect]
     Active Substance: SPIRONOLACTONE
     Indication: PRODUCT USED FOR UNKNOWN INDICATION
     Dosage: 25 MG, DAILY DOSE
     Route: 048
     Dates: start: 20160326, end: 20160407
  2. SAMSCA [Suspect]
     Active Substance: TOLVAPTAN
     Indication: ASCITES
     Dosage: 3.75 MG, DAILY DOSE
     Route: 048
     Dates: start: 20160326, end: 20160407
  3. SAMSCA [Suspect]
     Active Substance: TOLVAPTAN
     Dosage: UNK
     Route: 065
     Dates: start: 20160509

REACTIONS (6)
  - Blood pressure decreased [Unknown]
  - Dehydration [Recovered/Resolved]
  - Dizziness [Unknown]
  - Bradycardia [Unknown]
  - Ischaemic hepatitis [Recovered/Resolved]
  - Hyperkalaemia [Unknown]

NARRATIVE: CASE EVENT DATE: 20160407
